APPROVED DRUG PRODUCT: LORAZEPAM
Active Ingredient: LORAZEPAM
Strength: 1MG
Dosage Form/Route: TABLET;ORAL
Application: A218597 | Product #002 | TE Code: AB
Applicant: GRAVITI PHARMACEUTICALS PRIVATE LTD
Approved: Jul 24, 2025 | RLD: No | RS: No | Type: RX